FAERS Safety Report 23159218 (Version 1)
Quarter: 2023Q4

REPORT INFORMATION
  Report Type: Spontaneous
  Country: CN (occurrence: CN)
  Receive Date: 20231108
  Receipt Date: 20231108
  Transmission Date: 20240110
  Serious: Yes (Death, Hospitalization, Other)
  Sender: FDA-Public Use
  Company Number: CN-SA-SAC20231107000117

PATIENT
  Age: 70 Year
  Sex: Male

DRUGS (2)
  1. CLOPIDOGREL BISULFATE [Suspect]
     Active Substance: CLOPIDOGREL BISULFATE
     Indication: Coronary artery disease
     Dosage: 75 MG QD
     Route: 048
     Dates: start: 20231021, end: 20231027
  2. FEBUXOSTAT [Suspect]
     Active Substance: FEBUXOSTAT
     Indication: Hyperuricaemia
     Dosage: 20 MG QD
     Route: 048
     Dates: start: 20231023, end: 20231025

REACTIONS (11)
  - Haemolysis [Fatal]
  - Haemoglobin decreased [Fatal]
  - Heart rate decreased [Fatal]
  - Blood pressure decreased [Fatal]
  - Altered state of consciousness [Fatal]
  - Oxygen saturation decreased [Fatal]
  - Coma [Fatal]
  - Bone hypertrophy [Unknown]
  - Infection [Unknown]
  - Condition aggravated [Unknown]
  - Miosis [Unknown]

NARRATIVE: CASE EVENT DATE: 20231024
